FAERS Safety Report 5283083-9 (Version None)
Quarter: 2007Q2

REPORT INFORMATION
  Report Type: 
  Country: None (occurrence: None)
  Receive Date: 20070402
  Receipt Date: 20070326
  Transmission Date: 20071010
  Serious: Yes (Other)
  Sender: FDA-Public Use
  Company Number: JP-AVENTIS-200710786JP

PATIENT
  Age: 80 Year
  Sex: Female

DRUGS (1)
  1. ALLEGRA [Suspect]

REACTIONS (1)
  - AGRANULOCYTOSIS [None]
